FAERS Safety Report 5831521-2 (Version None)
Quarter: 2008Q3

REPORT INFORMATION
  Report Type: 
  Country: None (occurrence: None)
  Receive Date: 20080801
  Receipt Date: 20080724
  Transmission Date: 20090109
  Serious: Yes (Other)
  Sender: FDA-Public Use
  Company Number: US-MERCK-0807USA00070

PATIENT
  Age: 69 Year
  Sex: Male
  Weight: 87 kg

DRUGS (1)
  1. JANUMET [Suspect]
     Route: 048

REACTIONS (3)
  - BLINDNESS [None]
  - BLOOD GLUCOSE FLUCTUATION [None]
  - UPPER RESPIRATORY TRACT INFECTION [None]
